FAERS Safety Report 5517985-2 (Version None)
Quarter: 2007Q4

REPORT INFORMATION
  Report Type: 
  Country: None (occurrence: None)
  Receive Date: 20071113
  Receipt Date: 20071030
  Transmission Date: 20080405
  Serious: Yes (Death, Hospitalization)
  Sender: FDA-Public Use
  Company Number: 239118K07USA

PATIENT
  Age: 77 Year
  Sex: Female

DRUGS (11)
  1. REBIF [Suspect]
     Indication: MULTIPLE SCLEROSIS
     Dosage: 44 MCG, 3 IN 1 WEEKS, SUBCUTANEOUS
     Route: 058
     Dates: start: 20060321, end: 20071001
  2. COUMADIN [Concomitant]
  3. TOPROL-XL [Concomitant]
  4. PROTONIX [Concomitant]
  5. FOSAMAX [Concomitant]
  6. LEXAPRO [Concomitant]
  7. XANAX [Concomitant]
  8. HYDROCODONE BITARTRATE [Concomitant]
  9. IMODIUM [Concomitant]
  10. MECLIZINE       (MELCLOZINE) [Concomitant]
  11. XALATAN [Concomitant]

REACTIONS (7)
  - ABNORMAL DREAMS [None]
  - ANGER [None]
  - AZOTAEMIA [None]
  - DEHYDRATION [None]
  - DEMENTIA [None]
  - EMOTIONAL DISORDER [None]
  - MULTIPLE SCLEROSIS [None]
